FAERS Safety Report 19260576 (Version 1)
Quarter: 2021Q2

REPORT INFORMATION
  Report Type: Spontaneous
  Country: US (occurrence: US)
  Receive Date: 20210514
  Receipt Date: 20210514
  Transmission Date: 20210717
  Serious: No
  Sender: FDA-Public Use
  Company Number: US-SUN PHARMACEUTICAL INDUSTRIES LTD-2020R1-263932

PATIENT
  Sex: Male

DRUGS (2)
  1. ILUMYA [Suspect]
     Active Substance: TILDRAKIZUMAB-ASMN
     Indication: TOXICITY TO VARIOUS AGENTS
  2. ILUMYA [Suspect]
     Active Substance: TILDRAKIZUMAB-ASMN
     Indication: PSORIASIS
     Dosage: 100 MILLIGRAM,EVERY 12 WEEKS
     Route: 058

REACTIONS (4)
  - Product dose omission issue [Unknown]
  - Psoriasis [Unknown]
  - Pain [Unknown]
  - Agitation [Unknown]
